FAERS Safety Report 7149102-X (Version None)
Quarter: 2010Q4

REPORT INFORMATION
  Report Type: 
  Country: None (occurrence: None)
  Receive Date: 20101124
  Receipt Date: 20101112
  Transmission Date: 20110411
  Serious: Yes (Hospitalization)
  Sender: FDA-Public Use
  Company Number: 2010P1002574

PATIENT
  Age: 55 Year
  Sex: Female
  Weight: 56.246 kg

DRUGS (1)
  1. FENTANYL-25 [Suspect]
     Indication: FIBROMYALGIA
     Dosage: 25 MCG/HR;Q48H;TDER
     Route: 062
     Dates: start: 20010101

REACTIONS (8)
  - APHAGIA [None]
  - DEHYDRATION [None]
  - FORMICATION [None]
  - INFLUENZA [None]
  - INSOMNIA [None]
  - RESTLESSNESS [None]
  - SENSORY DISTURBANCE [None]
  - WITHDRAWAL SYNDROME [None]
